FAERS Safety Report 25662877 (Version 2)
Quarter: 2025Q3

REPORT INFORMATION
  Report Type: Spontaneous
  Country: US (occurrence: US)
  Receive Date: 20250811
  Receipt Date: 20250820
  Transmission Date: 20251020
  Serious: No
  Sender: ROCHE
  Company Number: US-ROCHE-10000358263

PATIENT
  Age: 38 Year
  Sex: Female
  Weight: 96.61 kg

DRUGS (1)
  1. OCREVUS [Suspect]
     Active Substance: OCRELIZUMAB
     Indication: Multiple sclerosis
     Dosage: INITIAL DOSE OF 300 MG THEN RETURN IN 2 WEEKS FOR NEXT 300 MG DOSE
     Route: 042
     Dates: start: 20250801

REACTIONS (2)
  - Paraesthesia oral [Recovered/Resolved]
  - Urticaria [Recovered/Resolved]

NARRATIVE: CASE EVENT DATE: 20250801
